APPROVED DRUG PRODUCT: VELTIN
Active Ingredient: CLINDAMYCIN PHOSPHATE; TRETINOIN
Strength: 1.2%;0.025%
Dosage Form/Route: GEL;TOPICAL
Application: N050803 | Product #001 | TE Code: AB2
Applicant: ALMIRALL LLC
Approved: Jul 16, 2010 | RLD: Yes | RS: Yes | Type: RX